FAERS Safety Report 7151631-X (Version None)
Quarter: 2010Q4

REPORT INFORMATION
  Report Type: 
  Country: None (occurrence: None)
  Receive Date: 20101210
  Receipt Date: 20101130
  Transmission Date: 20110411
  Serious: Yes (Other)
  Sender: FDA-Public Use
  Company Number: US-PFIZER INC-2010161629

PATIENT
  Sex: Female

DRUGS (2)
  1. PRISTIQ [Suspect]
  2. ZOLOFT [Suspect]

REACTIONS (4)
  - CONSTIPATION [None]
  - FEELING ABNORMAL [None]
  - MEDICATION RESIDUE [None]
  - RECTAL HAEMORRHAGE [None]
